FAERS Safety Report 19052377 (Version 1)
Quarter: 2021Q1

REPORT INFORMATION
  Report Type: Report from Study
  Country: ES (occurrence: ES)
  Receive Date: 20210324
  Receipt Date: 20210324
  Transmission Date: 20210420
  Serious: Yes (Other)
  Sender: FDA-Public Use
  Company Number: ES-SUN PHARMACEUTICAL INDUSTRIES LTD-2021R1-287365

PATIENT
  Age: 55 Year
  Sex: Female

DRUGS (4)
  1. ATEZOLIZUMAB. [Suspect]
     Active Substance: ATEZOLIZUMAB
     Indication: LUNG ADENOCARCINOMA STAGE III
     Dosage: 14 CYCLES , UNK
     Route: 065
     Dates: end: 202006
  2. BEVACIZUMAB. [Suspect]
     Active Substance: BEVACIZUMAB
     Indication: LUNG ADENOCARCINOMA STAGE III
     Dosage: 14 CYCLES , UNK
     Route: 065
     Dates: end: 202006
  3. CARBOPLATIN. [Suspect]
     Active Substance: CARBOPLATIN
     Indication: LUNG ADENOCARCINOMA STAGE III
     Dosage: 6 CYCLES , UNK
     Route: 065
  4. PACLITAXEL. [Suspect]
     Active Substance: PACLITAXEL
     Indication: LUNG ADENOCARCINOMA STAGE III
     Dosage: 6 CYCLES , UNK
     Route: 065

REACTIONS (5)
  - Sepsis [Unknown]
  - Asthenia [Unknown]
  - Therapy partial responder [Unknown]
  - Febrile neutropenia [Unknown]
  - Peripheral sensory neuropathy [Recovering/Resolving]
